FAERS Safety Report 6150621-3 (Version None)
Quarter: 2009Q2

REPORT INFORMATION
  Report Type: 
  Country: None (occurrence: None)
  Receive Date: 20090408
  Receipt Date: 20090408
  Transmission Date: 20091009
  Serious: Yes (Hospitalization)
  Sender: FDA-Public Use
  Company Number: None

PATIENT
  Sex: Male
  Weight: 126 kg

DRUGS (2)
  1. SPRYCEL [Suspect]
     Indication: CHRONIC MYELOID LEUKAEMIA
     Dosage: 100 MG DAILY PO
     Route: 048
     Dates: start: 20090101, end: 20090112
  2. SPRYCEL [Suspect]
     Dosage: 100 MG TWICE DAILY PO
     Route: 048
     Dates: start: 20090113, end: 20090116

REACTIONS (6)
  - ABDOMINAL DISTENSION [None]
  - FLUID OVERLOAD [None]
  - NO THERAPEUTIC RESPONSE [None]
  - RECTAL FISSURE [None]
  - RENAL FAILURE ACUTE [None]
  - WEIGHT INCREASED [None]
